FAERS Safety Report 24638618 (Version 2)
Quarter: 2024Q4

REPORT INFORMATION
  Report Type: Spontaneous
  Country: US (occurrence: US)
  Receive Date: 20241119
  Receipt Date: 20241121
  Transmission Date: 20250115
  Serious: Yes (Hospitalization, Other)
  Sender: PFIZER
  Company Number: US-PFIZER INC-PV202400149337

PATIENT
  Age: 85 Year
  Sex: Male
  Weight: 68.9 kg

DRUGS (4)
  1. VYNDAMAX [Suspect]
     Active Substance: TAFAMIDIS
     Indication: Cardiac amyloidosis
     Dosage: 61 MG, 1X/DAY
     Route: 048
  2. BUMEX [Concomitant]
     Active Substance: BUMETANIDE
     Indication: Weight increased
     Dosage: 2 MG PRN (AS NEEDED)
  3. LIPITOR [Concomitant]
     Active Substance: ATORVASTATIN CALCIUM
     Dosage: 40 MG, 1X/DAY, AT BEDTIME
     Route: 048
  4. ELIQUIS [Concomitant]
     Active Substance: APIXABAN
     Dosage: TAKE 1 TABLET IN THE MORNING AND AT BEDTIME

REACTIONS (4)
  - Oedema peripheral [Unknown]
  - Hernia [Unknown]
  - Cardiac resynchronisation therapy [Recovering/Resolving]
  - Pneumonia [Unknown]
